FAERS Safety Report 12635858 (Version 2)
Quarter: 2016Q4

REPORT INFORMATION
  Report Type: Spontaneous
  Country: US (occurrence: US)
  Receive Date: 20160809
  Receipt Date: 20161027
  Transmission Date: 20170207
  Serious: No
  Sender: FDA-Public Use
  Company Number: US-ACTELION-A-US2016-140062

PATIENT
  Age: 43 Year
  Sex: Female

DRUGS (8)
  1. VALCHLOR [Suspect]
     Active Substance: MECHLORETHAMINE
     Indication: MYCOSIS FUNGOIDES
     Dosage: UNK
     Route: 061
     Dates: start: 201606
  2. GINKO BILOBA [Concomitant]
     Active Substance: GINKGO
  3. VITAMIN B [Concomitant]
     Active Substance: VITAMIN B
  4. LEVOTHYROXINE. [Concomitant]
     Active Substance: LEVOTHYROXINE
  5. MAGNESIUM [Concomitant]
     Active Substance: MAGNESIUM
  6. FOLIC ACID. [Concomitant]
     Active Substance: FOLIC ACID
  7. PANTOPRAZOLE [Concomitant]
     Active Substance: PANTOPRAZOLE SODIUM
  8. LORATADINE. [Concomitant]
     Active Substance: LORATADINE

REACTIONS (5)
  - Skin hyperpigmentation [Unknown]
  - Erythema [Recovering/Resolving]
  - Dry skin [Unknown]
  - Skin exfoliation [Unknown]
  - Arthralgia [Unknown]
